FAERS Safety Report 4991450-3 (Version None)
Quarter: 2006Q2

REPORT INFORMATION
  Report Type: 
  Country: None (occurrence: None)
  Receive Date: 20060504
  Receipt Date: 20060427
  Transmission Date: 20061013
  Serious: Yes (Other)
  Sender: FDA-Public Use
  Company Number: 2006UW07649

PATIENT
  Age: 82 Year
  Sex: Male
  Weight: 83.5 kg

DRUGS (2)
  1. TOPROL-XL [Suspect]
     Indication: CHEST PAIN
     Route: 048
     Dates: start: 20050401, end: 20060406
  2. ASPIRIN [Concomitant]

REACTIONS (7)
  - ABDOMINAL PAIN [None]
  - CHEST PAIN [None]
  - CHOLECYSTECTOMY [None]
  - DIZZINESS [None]
  - DYSPNOEA [None]
  - FATIGUE [None]
  - PRURITUS [None]
